FAERS Safety Report 8243248-0 (Version None)
Quarter: 2012Q1

REPORT INFORMATION
  Report Type: 
  Country: None (occurrence: None)
  Receive Date: 20120329
  Receipt Date: 20120319
  Transmission Date: 20120608
  Serious: No
  Sender: FDA-Public Use
  Company Number: US-B.I. PHARMACEUTICALS,INC./RIDGEFIELD-2012-BP-05139BP

PATIENT
  Age: 69 Year
  Sex: Female

DRUGS (3)
  1. ZANTAC 150 [Suspect]
     Dosage: 150 MG
     Route: 048
     Dates: start: 20120318, end: 20120318
  2. ZANTAC 150 [Suspect]
     Indication: GASTROOESOPHAGEAL REFLUX DISEASE
     Dosage: 300 MG
     Route: 048
     Dates: start: 20120310, end: 20120313
  3. FISH OIL [Concomitant]

REACTIONS (2)
  - INSOMNIA [None]
  - NAUSEA [None]
